FAERS Safety Report 23724735 (Version 1)
Quarter: 2024Q2

REPORT INFORMATION
  Report Type: Report from Study
  Country: US (occurrence: US)
  Receive Date: 20240409
  Receipt Date: 20240409
  Transmission Date: 20240716
  Serious: Yes (Hospitalization)
  Sender: FDA-Public Use
  Company Number: US-ABBVIE-5484129

PATIENT
  Sex: Male

DRUGS (4)
  1. RINVOQ [Suspect]
     Active Substance: UPADACITINIB
     Indication: Colitis ulcerative
     Dosage: FORM STRENGTH : 30MG
     Route: 048
     Dates: start: 20230714, end: 20230908
  2. RINVOQ [Suspect]
     Active Substance: UPADACITINIB
     Indication: Colitis ulcerative
     Dosage: EXTENDED RELEASE, STRENGTH: 30MG, FIRST ADMIN DATE: 2023
     Route: 048
     Dates: start: 20230909, end: 20231227
  3. RINVOQ [Suspect]
     Active Substance: UPADACITINIB
     Indication: Colitis ulcerative
     Route: 048
     Dates: start: 20231228
  4. RINVOQ [Suspect]
     Active Substance: UPADACITINIB
     Indication: Colitis ulcerative
     Route: 048
     Dates: start: 202312

REACTIONS (18)
  - Road traffic accident [Unknown]
  - Defaecation urgency [Unknown]
  - Defaecation urgency [Unknown]
  - Haematochezia [Unknown]
  - Frequent bowel movements [Unknown]
  - Insomnia [Unknown]
  - Frequent bowel movements [Unknown]
  - Rash [Unknown]
  - Flatulence [Unknown]
  - Mucous stools [Unknown]
  - Diarrhoea [Unknown]
  - Abdominal distension [Unknown]
  - Asthenia [Unknown]
  - Constipation [Unknown]
  - Abdominal pain [Unknown]
  - Rib fracture [Unknown]
  - Pain [Unknown]
  - Therapeutic product effect incomplete [Unknown]

NARRATIVE: CASE EVENT DATE: 20230101
